FAERS Safety Report 22213438 (Version 2)
Quarter: 2023Q2

REPORT INFORMATION
  Report Type: Spontaneous
  Country: US (occurrence: US)
  Receive Date: 20230414
  Receipt Date: 20230505
  Transmission Date: 20230722
  Serious: Yes (Death, Other)
  Sender: FDA-Public Use
  Company Number: US-BAYER-2023A044189

PATIENT
  Age: 58 Year
  Sex: Male

DRUGS (1)
  1. TINACTIN [Suspect]
     Active Substance: TOLNAFTATE
     Dosage: DAILY PERSONAL USE
     Dates: start: 1980, end: 2000

REACTIONS (8)
  - Mesothelioma malignant [Fatal]
  - Cardiac arrest [Fatal]
  - Pain [None]
  - Emotional distress [None]
  - Anhedonia [None]
  - Deformity [None]
  - Grief reaction [None]
  - Anxiety [None]

NARRATIVE: CASE EVENT DATE: 20211202
